FAERS Safety Report 9938195 (Version 1)
Quarter: 2014Q1

REPORT INFORMATION
  Report Type: Report from Study
  Country: US (occurrence: US)
  Receive Date: 20140303
  Receipt Date: 20140303
  Transmission Date: 20141002
  Serious: No
  Sender: FDA-Public Use
  Company Number: US-ABBVIE-13P-163-1031852-00

PATIENT
  Age: 55 Year
  Sex: Male

DRUGS (5)
  1. HUMIRA [Suspect]
     Indication: PSORIASIS
     Dates: start: 20121115
  2. DIOVAN [Concomitant]
     Indication: BLOOD PRESSURE
  3. FERROUS SULFATE [Concomitant]
     Indication: ANAEMIA
  4. ZETIA [Concomitant]
     Indication: BLOOD CHOLESTEROL
     Dosage: 1 DAILY
  5. FISH OIL [Concomitant]
     Indication: PRODUCT USED FOR UNKNOWN INDICATION

REACTIONS (2)
  - Pain [Not Recovered/Not Resolved]
  - Arthralgia [Not Recovered/Not Resolved]
